FAERS Safety Report 5005389-0 (Version None)
Quarter: 2006Q2

REPORT INFORMATION
  Report Type: 
  Country: None (occurrence: None)
  Receive Date: 20060518
  Receipt Date: 20050831
  Transmission Date: 20061013
  Serious: Yes (Hospitalization)
  Sender: FDA-Public Use
  Company Number: US-MERCK-0509USA00150

PATIENT
  Age: 51 Year
  Sex: Female
  Weight: 123 kg

DRUGS (8)
  1. VIOXX [Suspect]
     Indication: ARTHRITIS
     Route: 048
     Dates: start: 19990806, end: 20040901
  2. CARDIZEM [Concomitant]
     Route: 065
  3. PREMARIN [Concomitant]
     Route: 065
  4. LASIX [Concomitant]
     Route: 065
  5. PRILOSEC [Concomitant]
     Route: 065
  6. ACCUPRIL [Concomitant]
     Route: 065
  7. NITROGLYCERIN [Concomitant]
     Route: 065
  8. INSULIN [Concomitant]
     Route: 065

REACTIONS (8)
  - ANXIETY [None]
  - ARTERIOSCLEROSIS CORONARY ARTERY [None]
  - FEAR [None]
  - LUNG INFECTION [None]
  - MYOCARDIAL INFARCTION [None]
  - PAIN [None]
  - SLEEP APNOEA SYNDROME [None]
  - WEIGHT INCREASED [None]
